FAERS Safety Report 4812046-X (Version None)
Quarter: 2005Q4

REPORT INFORMATION
  Report Type: 
  Country: None (occurrence: None)
  Receive Date: 20051028
  Receipt Date: 20041025
  Transmission Date: 20060501
  Serious: No
  Sender: FDA-Public Use
  Company Number: US-GLAXOSMITHKLINE-A0531248A

PATIENT
  Age: 55 Year
  Sex: Female

DRUGS (7)
  1. ADVAIR DISKUS 100/50 [Suspect]
     Indication: ASTHMA
     Route: 055
     Dates: start: 20031001
  2. THEOPHYLLINE [Concomitant]
  3. SINGULAIR [Concomitant]
  4. ALBUTEROL [Concomitant]
  5. HYDROCHLOROTHIAZIDE [Concomitant]
  6. POTASSIUM [Concomitant]
  7. PREMPRO [Concomitant]

REACTIONS (1)
  - DYSPNOEA [None]
